FAERS Safety Report 5640786-1 (Version None)
Quarter: 2008Q1

REPORT INFORMATION
  Report Type: 
  Country: None (occurrence: None)
  Receive Date: 20080227
  Receipt Date: 20080218
  Transmission Date: 20080703
  Serious: Yes (Hospitalization)
  Sender: FDA-Public Use
  Company Number: FR-ELI_LILLY_AND_COMPANY-FR200802004113

PATIENT
  Sex: Male

DRUGS (3)
  1. GEMCITABINE HCL [Suspect]
     Indication: GERM CELL CANCER
     Dosage: 1000 MG/M2, OTHER
     Route: 042
  2. IFOSFAMIDE [Suspect]
     Indication: GERM CELL CANCER
     Dosage: 1200 MG/M2, OTHER
     Route: 042
  3. CISPLATIN [Suspect]
     Indication: GERM CELL CANCER
     Route: 042

REACTIONS (4)
  - CENTRAL NERVOUS SYSTEM ABSCESS [None]
  - CONVULSION [None]
  - FACIAL PALSY [None]
  - MYOCLONUS [None]
